FAERS Safety Report 4751504-3 (Version None)
Quarter: 2005Q3

REPORT INFORMATION
  Report Type: 
  Country: None (occurrence: None)
  Receive Date: 20050824
  Receipt Date: 20050810
  Transmission Date: 20060218
  Serious: Yes (Life-Threatening, Hospitalization)
  Sender: FDA-Public Use
  Company Number: US-KINGPHARMUSA00001-K200501071

PATIENT
  Age: 21 Year
  Sex: Female
  Weight: 46 kg

DRUGS (17)
  1. SONATA [Suspect]
     Indication: SUICIDE ATTEMPT
     Dosage: 14 TO 16 TABS
     Dates: start: 20050509, end: 20050509
  2. CISAPRIDE [Suspect]
     Indication: GASTROOESOPHAGEAL REFLUX DISEASE
     Dosage: 10 MG, QID
     Route: 048
     Dates: start: 20031027, end: 20050510
  3. PLAQUENIL [Concomitant]
     Dosage: 200 MG, BID
  4. PRINIVIL [Concomitant]
     Indication: HYPERTENSION
     Dosage: 5 MG, QD
  5. FAMVIR [Concomitant]
     Indication: HERPES ZOSTER
     Dosage: 500 MG, QD
  6. NEUTRA-PHOS [Concomitant]
     Indication: MEDICAL DIET
     Dosage: 1 DOSE, BID
  7. NEXIUM [Concomitant]
     Indication: GASTROOESOPHAGEAL REFLUX DISEASE
     Dosage: 40 MG, BID
  8. ACTONEL [Concomitant]
     Indication: OSTEOPOROSIS
     Dosage: 35 MG, QW
  9. ZANTAC [Concomitant]
     Indication: GASTROOESOPHAGEAL REFLUX DISEASE
     Dosage: 150 MG, BID
  10. PREDNISONE [Concomitant]
     Indication: SYSTEMIC LUPUS ERYTHEMATOSUS
     Dosage: 4 MG, QD
     Dates: start: 20040224
  11. SKELAXIN [Concomitant]
     Indication: PAIN
     Dosage: 200 MG, QD, PRN
     Dates: start: 20030801
  12. FLONASE [Concomitant]
     Indication: RHINITIS
     Dosage: 1 DOSE, BID
     Route: 045
     Dates: start: 20040420
  13. FLOVENT [Concomitant]
     Dosage: 44 UG, BID
     Dates: start: 20031009
  14. ALBUTEROL [Concomitant]
     Indication: ASTHMA
     Dosage: 1 DOSE, QD, PRN
     Dates: start: 20040421
  15. CELLCEPT [Concomitant]
     Indication: SYSTEMIC LUPUS ERYTHEMATOSUS
     Dosage: 250 MG, 5 IN 1 DAY
     Dates: start: 20040915
  16. NORVASC [Concomitant]
     Indication: HYPERTENSION
     Dosage: 5 MG, QD
     Dates: start: 20040801
  17. TUSSIONEX PENNKINETIC(CHLORPHENAMINE,HYDROCODONE) [Concomitant]
     Indication: UPPER RESPIRATORY TRACT INFECTION
     Dosage: 5 ML, BID
     Dates: start: 20041220

REACTIONS (4)
  - DEPRESSION [None]
  - OVERDOSE [None]
  - SUICIDE ATTEMPT [None]
  - UNEVALUABLE EVENT [None]
